FAERS Safety Report 11231448 (Version 1)
Quarter: 2015Q3

REPORT INFORMATION
  Report Type: Spontaneous
  Country: CN (occurrence: CN)
  Receive Date: 20150701
  Receipt Date: 20150701
  Transmission Date: 20151125
  Serious: Yes (Hospitalization, Other)
  Sender: FDA-Public Use
  Company Number: CN-GLAXOSMITHKLINE-CN2015GSK093890

PATIENT
  Age: 9 Year
  Sex: Female

DRUGS (1)
  1. LAMOTRIGINE. [Suspect]
     Active Substance: LAMOTRIGINE
     Indication: EPILEPSY
     Route: 048

REACTIONS (11)
  - Enanthema [Recovered/Resolved]
  - Pyrexia [Recovered/Resolved]
  - Cough [Unknown]
  - Rash [Recovered/Resolved]
  - Dyspnoea [Unknown]
  - Computerised tomogram abnormal [Unknown]
  - Pneumothorax [Unknown]
  - Bronchial obstruction [Unknown]
  - Stevens-Johnson syndrome [Recovered/Resolved]
  - Obliterative bronchiolitis [Unknown]
  - Wheezing [Unknown]
